FAERS Safety Report 10100164 (Version 8)
Quarter: 2015Q1

REPORT INFORMATION
  Report Type: Spontaneous
  Country: US (occurrence: US)
  Receive Date: 20140423
  Receipt Date: 20150127
  Transmission Date: 20150720
  Serious: Yes (Hospitalization, Other)
  Sender: FDA-Public Use
  Company Number: US-009507513-1404USA010656

PATIENT
  Sex: Male
  Weight: 90.7 kg

DRUGS (3)
  1. HYDROCHLOROTHIAZIDE. [Concomitant]
     Active Substance: HYDROCHLOROTHIAZIDE
     Indication: HYPERTENSION
     Dosage: 25 MG, QD
     Route: 048
     Dates: start: 1990
  2. DIOVAN [Concomitant]
     Active Substance: VALSARTAN
     Indication: HYPERTENSION
     Dosage: 160 MG, QD
     Route: 048
     Dates: start: 1990
  3. PROPECIA [Suspect]
     Active Substance: FINASTERIDE
     Indication: PROPHYLAXIS
     Dosage: 1 MG, QD
     Route: 048
     Dates: start: 20040728, end: 20090729

REACTIONS (24)
  - Intervertebral disc operation [Unknown]
  - Musculoskeletal chest pain [Unknown]
  - Radiotherapy [Unknown]
  - Adenotonsillectomy [Unknown]
  - Prostatectomy [Unknown]
  - Gastrointestinal motility disorder [Unknown]
  - Sexual dysfunction [Unknown]
  - Hypertension [Recovered/Resolved]
  - Nocturia [Unknown]
  - Sexual dysfunction [Not Recovered/Not Resolved]
  - Intervertebral disc operation [Unknown]
  - Hypercholesterolaemia [Unknown]
  - Pollakiuria [Unknown]
  - Intervertebral disc disorder [Recovered/Resolved]
  - Prostate cancer stage II [Not Recovered/Not Resolved]
  - Prostate cancer recurrent [Unknown]
  - Radiotherapy [Unknown]
  - Osteoarthritis [Unknown]
  - Cyst [Unknown]
  - Erectile dysfunction [Not Recovered/Not Resolved]
  - Lymphadenectomy [Unknown]
  - Metastases to lymph nodes [Unknown]
  - Fatigue [Unknown]
  - Bone lesion [Unknown]

NARRATIVE: CASE EVENT DATE: 20060316
